FAERS Safety Report 4586022-9 (Version None)
Quarter: 2005Q1

REPORT INFORMATION
  Report Type: 
  Country: None (occurrence: None)
  Receive Date: 20050125
  Receipt Date: 20041006
  Transmission Date: 20050727
  Serious: No
  Sender: FDA-Public Use
  Company Number: USA040568409

PATIENT
  Age: 71 Year
  Sex: Female
  Weight: 67.1324 kg

DRUGS (10)
  1. FORTEO [Suspect]
     Indication: OSTEOPOROSIS
     Dosage: 20 UG DAY
     Dates: start: 20040402, end: 20040518
  2. NEXIUM [Concomitant]
  3. SYNTHROID [Concomitant]
  4. CENTESTIN (ESTROGENS CONJUGATED) [Concomitant]
  5. CALCIUM GLUCONATE [Concomitant]
  6. POTASSIUM CHLORIDE [Concomitant]
  7. ZETIA [Concomitant]
  8. TRICOR [Concomitant]
  9. MIACALCIN [Concomitant]
  10. VITAMIN D [Concomitant]

REACTIONS (6)
  - ANXIETY [None]
  - ARTHRALGIA [None]
  - BLOOD CALCIUM INCREASED [None]
  - BLOOD GLUCOSE INCREASED [None]
  - FATIGUE [None]
  - MUSCLE SPASMS [None]
